FAERS Safety Report 10012636 (Version 4)
Quarter: 2014Q3

REPORT INFORMATION
  Report Type: Report from Study
  Country: US (occurrence: US)
  Receive Date: 20140314
  Receipt Date: 20140908
  Transmission Date: 20150326
  Serious: Yes (Hospitalization, Other)
  Sender: FDA-Public Use
  Company Number: US-ABBVIE-14P-163-1210047-00

PATIENT
  Age: 46 Year
  Sex: Female
  Weight: 45.4 kg

DRUGS (9)
  1. VITAMIN B12 [Concomitant]
     Active Substance: CYANOCOBALAMIN
     Indication: VITAMIN SUPPLEMENTATION
  2. HUMIRA [Suspect]
     Active Substance: ADALIMUMAB
  3. ZYRTEC [Concomitant]
     Active Substance: CETIRIZINE HYDROCHLORIDE
     Indication: PRODUCT USED FOR UNKNOWN INDICATION
  4. HUMIRA [Suspect]
     Active Substance: ADALIMUMAB
     Dates: start: 20140825, end: 20140825
  5. PANTOPRAZOLE [Concomitant]
     Active Substance: PANTOPRAZOLE SODIUM
     Indication: DYSPEPSIA
  6. VITAMINS [Concomitant]
     Active Substance: VITAMINS
     Indication: VITAMIN SUPPLEMENTATION
  7. HUMIRA [Suspect]
     Active Substance: ADALIMUMAB
     Dates: start: 20140811, end: 20140811
  8. VITAMIN D [Concomitant]
     Active Substance: CHOLECALCIFEROL
     Indication: VITAMIN SUPPLEMENTATION
  9. HUMIRA [Suspect]
     Active Substance: ADALIMUMAB
     Indication: CROHN^S DISEASE
     Dates: start: 201101, end: 20130622

REACTIONS (24)
  - Abdominal pain [Recovered/Resolved]
  - Intestinal fistula [Unknown]
  - Abdominal pain [Recovered/Resolved]
  - Wrong technique in drug usage process [Unknown]
  - Blood potassium decreased [Recovered/Resolved]
  - Anaemia [Recovered/Resolved]
  - Cholelithiasis [Recovered/Resolved]
  - Device issue [Unknown]
  - Injection site rash [Unknown]
  - Vomiting [Recovered/Resolved]
  - Wrong technique in drug usage process [Unknown]
  - Wound infection [Recovered/Resolved]
  - Vomiting [Recovered/Resolved]
  - Headache [Recovered/Resolved]
  - Incorrect dose administered [Unknown]
  - Incorrect dose administered [Unknown]
  - Localised intraabdominal fluid collection [Recovered/Resolved]
  - Large intestinal stenosis [Recovered/Resolved]
  - Wound dehiscence [Recovered/Resolved]
  - Drug ineffective [Unknown]
  - Dental caries [Recovered/Resolved]
  - Weight decreased [Not Recovered/Not Resolved]
  - Injection site erythema [Not Recovered/Not Resolved]
  - Device issue [Unknown]

NARRATIVE: CASE EVENT DATE: 2013
